FAERS Safety Report 10056502 (Version 1)
Quarter: 2014Q2

REPORT INFORMATION
  Report Type: Spontaneous
  Country: CA (occurrence: CA)
  Receive Date: 20140403
  Receipt Date: 20140403
  Transmission Date: 20141212
  Serious: Yes (Death)
  Sender: FDA-Public Use
  Company Number: CA-PFIZER INC-2014092512

PATIENT
  Age: 57 Year
  Sex: Male
  Weight: 95 kg

DRUGS (7)
  1. SERTRALINE HCL [Suspect]
     Dosage: 100 MG, 2X/DAY
     Route: 048
  2. ALVESCO [Concomitant]
     Dosage: METERED DOSE
  3. ATIVAN [Concomitant]
     Dosage: UNK
  4. OMEPRAZOLE [Concomitant]
     Dosage: UNK
  5. QUETIAPINE [Concomitant]
     Dosage: UNK
  6. RISPERIDONE [Concomitant]
     Dosage: UNK
  7. ZOPICLONE [Concomitant]
     Dosage: UNK

REACTIONS (1)
  - Toxicity to various agents [Fatal]
